FAERS Safety Report 7833449-5 (Version None)
Quarter: 2011Q4

REPORT INFORMATION
  Report Type: 
  Country: None (occurrence: None)
  Receive Date: 20111024
  Receipt Date: 20101026
  Transmission Date: 20120403
  Serious: No
  Sender: FDA-Public Use
  Company Number: US-BAYER-201039012NA

PATIENT
  Age: 46 Year
  Sex: Female

DRUGS (18)
  1. FROVA [Concomitant]
  2. CLONAZEPAM [Concomitant]
  3. HYDROCODONE BITARTRATE [Concomitant]
  4. ORPHENADRINE CITRATE [Concomitant]
  5. CIPROFLOXACIN [Suspect]
     Indication: KIDNEY INFECTION
     Dosage: 500 MG, BID
     Route: 048
     Dates: start: 20101018
  6. FLOVENT [Concomitant]
  7. OXYBUTYNIN [Concomitant]
  8. LEXAPRO [Concomitant]
  9. LEVOTHYROXINE SODIUM [Concomitant]
  10. PROAIR HFA [Concomitant]
  11. TARTRAZINE [Concomitant]
  12. NAPROXEN [Concomitant]
  13. SIMVASTATIN [Concomitant]
  14. LOXAPINE [Concomitant]
  15. PREMARIN [Concomitant]
  16. METOPROLOL TARTRATE [Concomitant]
  17. TOPIRAMATE [Concomitant]
  18. VITAMIN B-12 [Concomitant]

REACTIONS (2)
  - PAIN [None]
  - CONSTIPATION [None]
